FAERS Safety Report 6496994-3 (Version None)
Quarter: 2009Q4

REPORT INFORMATION
  Report Type: 
  Country: None (occurrence: None)
  Receive Date: 20091215
  Receipt Date: 20090108
  Transmission Date: 20100525
  Serious: No
  Sender: FDA-Public Use
  Company Number: A0759728A

PATIENT
  Age: 74 Year
  Sex: Male

DRUGS (4)
  1. AVODART [Suspect]
     Indication: BENIGN PROSTATIC HYPERPLASIA
     Dosage: .5MG PER DAY
     Route: 048
     Dates: start: 20081101
  2. LIPITOR [Concomitant]
     Dosage: 10MG PER DAY
     Route: 048
  3. TRAVATAN [Concomitant]
     Indication: GLAUCOMA
  4. COSOPT [Concomitant]
     Indication: GLAUCOMA

REACTIONS (1)
  - DYSURIA [None]
